FAERS Safety Report 26178534 (Version 2)
Quarter: 2025Q4

REPORT INFORMATION
  Report Type: Spontaneous
  Country: JP (occurrence: JP)
  Receive Date: 20251219
  Receipt Date: 20251226
  Transmission Date: 20260117
  Serious: Yes (Death, Hospitalization, Other)
  Sender: UCB
  Company Number: JP-UCBJ-CD202516544UCBPHAPROD

PATIENT
  Age: 19 Year
  Weight: 54 kg

DRUGS (1)
  1. VIMPAT [Suspect]
     Active Substance: LACOSAMIDE
     Indication: Suspected suicide attempt
     Dosage: 10000 MILLIGRAM
     Route: 061

REACTIONS (3)
  - Death [Fatal]
  - Toxicity to various agents [Fatal]
  - Intentional overdose [Unknown]
